FAERS Safety Report 8482435-3 (Version None)
Quarter: 2012Q3

REPORT INFORMATION
  Report Type: 
  Country: None (occurrence: None)
  Receive Date: 20120702
  Receipt Date: 20120626
  Transmission Date: 20120928
  Serious: Yes (Other)
  Sender: FDA-Public Use
  Company Number: US-GLAXOSMITHKLINE-A0982479A

PATIENT
  Age: 61 Year
  Sex: Male

DRUGS (6)
  1. PLAVIX [Concomitant]
  2. ENALAPRIL MALEATE [Concomitant]
  3. LISINOPRIL [Concomitant]
  4. CRESTOR [Concomitant]
  5. ASPIRIN [Concomitant]
  6. FLONASE [Suspect]
     Indication: RHINITIS ALLERGIC
     Dosage: 2SPR PER DAY
     Route: 045
     Dates: start: 19910101, end: 20120101

REACTIONS (2)
  - RETINAL INJURY [None]
  - VISUAL ACUITY REDUCED [None]
